FAERS Safety Report 9767315 (Version 1)
Quarter: 2013Q4

REPORT INFORMATION
  Report Type: Spontaneous
  Country: GB (occurrence: GB)
  Receive Date: 20131217
  Receipt Date: 20131217
  Transmission Date: 20140711
  Serious: Yes (Hospitalization, Other)
  Sender: FDA-Public Use
  Company Number: GB-ELI_LILLY_AND_COMPANY-GB201312001214

PATIENT
  Age: 47 Year
  Sex: Female
  Weight: 98 kg

DRUGS (1)
  1. OLANZAPINE [Suspect]
     Indication: MENTAL DISORDER
     Dosage: 20 MG, UNKNOWN
     Route: 048
     Dates: start: 2000, end: 2009

REACTIONS (7)
  - Uterine haemorrhage [Not Recovered/Not Resolved]
  - Oedema peripheral [Not Recovered/Not Resolved]
  - Obesity [Unknown]
  - Abnormal weight gain [Not Recovered/Not Resolved]
  - Hormone level abnormal [Unknown]
  - Galactorrhoea [Not Recovered/Not Resolved]
  - Local swelling [Unknown]
